FAERS Safety Report 15848406 (Version 2)
Quarter: 2019Q1

REPORT INFORMATION
  Report Type: Spontaneous
  Country: DE (occurrence: DE)
  Receive Date: 20190121
  Receipt Date: 20190211
  Transmission Date: 20190417
  Serious: Yes (Hospitalization, Other)
  Sender: FDA-Public Use
  Company Number: DE-TEVA-2019-DE-1001387

PATIENT
  Age: 27 Year
  Sex: Female

DRUGS (1)
  1. COPAXONE [Suspect]
     Active Substance: GLATIRAMER ACETATE
     Indication: MULTIPLE SCLEROSIS
     Dosage: 20 MILLIGRAM DAILY;
     Dates: start: 20181101

REACTIONS (4)
  - Pain in extremity [Unknown]
  - Multiple sclerosis relapse [Unknown]
  - Paraesthesia [Unknown]
  - Eye pain [Unknown]

NARRATIVE: CASE EVENT DATE: 201901
